FAERS Safety Report 5632899-5 (Version None)
Quarter: 2008Q1

REPORT INFORMATION
  Report Type: 
  Country: None (occurrence: None)
  Receive Date: 20080212
  Receipt Date: 20080131
  Transmission Date: 20080703
  Serious: Yes (Life-Threatening, Hospitalization)
  Sender: FDA-Public Use
  Company Number: TCI2007A06740

PATIENT
  Age: 85 Year
  Sex: Male

DRUGS (5)
  1. ACTOS [Suspect]
     Indication: SELF-MEDICATION
     Dosage: PER ORAL
     Route: 048
  2. EUGLUCON(OLISENCLAMIDE) [Suspect]
     Indication: SELF-MEDICATION
     Dosage: PER ORAL
     Route: 048
  3. ALINAMIN-F(FURSULTIAMINE) [Concomitant]
  4. ONEALFA (ALFACALCIDOL) [Concomitant]
  5. METHYCOBAL (MECOBALAMIN) [Concomitant]

REACTIONS (8)
  - ACCIDENTAL EXPOSURE [None]
  - ALTERED STATE OF CONSCIOUSNESS [None]
  - BODY TEMPERATURE DECREASED [None]
  - HYPOGLYCAEMIA [None]
  - INCONTINENCE [None]
  - RESPIRATORY DEPRESSION [None]
  - SELF-MEDICATION [None]
  - SOMNOLENCE [None]
